FAERS Safety Report 4999676-X (Version None)
Quarter: 2006Q2

REPORT INFORMATION
  Report Type: 
  Country: None (occurrence: None)
  Receive Date: 20060511
  Receipt Date: 20060503
  Transmission Date: 20061013
  Serious: Yes (Hospitalization, Other)
  Sender: FDA-Public Use
  Company Number: US-JNJFOC-20060500989

PATIENT
  Sex: Female
  Weight: 72.58 kg

DRUGS (9)
  1. REMICADE [Suspect]
     Route: 042
  2. REMICADE [Suspect]
     Route: 042
  3. REMICADE [Suspect]
     Route: 042
  4. REMICADE [Suspect]
     Indication: RHEUMATOID ARTHRITIS
     Route: 042
  5. METHOTREXATE [Concomitant]
  6. ACETAMINOPHEN [Concomitant]
     Indication: PREMEDICATION
  7. BENADRYL [Concomitant]
     Indication: PREMEDICATION
  8. WELLBUTRIN [Concomitant]
  9. CLONAZEPAM [Concomitant]

REACTIONS (9)
  - BLOOD PRESSURE DECREASED [None]
  - DRUG INEFFECTIVE [None]
  - DRUG SPECIFIC ANTIBODY PRESENT [None]
  - FATIGUE [None]
  - FUNGAL INFECTION [None]
  - HEADACHE [None]
  - INFUSION RELATED REACTION [None]
  - NAUSEA [None]
  - PRURITUS [None]
